FAERS Safety Report 6742721-1 (Version None)
Quarter: 2010Q2

REPORT INFORMATION
  Report Type: 
  Country: None (occurrence: None)
  Receive Date: 20100526
  Receipt Date: 20091209
  Transmission Date: 20101027
  Serious: No
  Sender: FDA-Public Use
  Company Number: US-ABBOTT-09P-163-0614184-00

PATIENT
  Sex: Male
  Weight: 71 kg

DRUGS (3)
  1. ZEMPLAR [Suspect]
     Indication: HYPERPARATHYROIDISM
     Dates: start: 20080101, end: 20091207
  2. EPOGEN [Concomitant]
     Indication: DIALYSIS
  3. HEPARIN [Concomitant]
     Indication: DIALYSIS

REACTIONS (2)
  - BLOOD PRESSURE INCREASED [None]
  - HEADACHE [None]
